FAERS Safety Report 17544543 (Version 3)
Quarter: 2020Q2

REPORT INFORMATION
  Report Type: Report from Study
  Country: US (occurrence: US)
  Receive Date: 20200316
  Receipt Date: 20200625
  Transmission Date: 20200713
  Serious: No
  Sender: FDA-Public Use
  Company Number: NVSC2020US073195

PATIENT
  Sex: Female

DRUGS (1)
  1. COSENTYX [Suspect]
     Active Substance: SECUKINUMAB
     Indication: PSORIATIC ARTHROPATHY
     Dosage: UNK (MAINTENANCE DOSE)
     Route: 065

REACTIONS (5)
  - Musculoskeletal stiffness [Unknown]
  - Psoriasis [Unknown]
  - Diarrhoea [Unknown]
  - Pollakiuria [Unknown]
  - Pain [Unknown]
